FAERS Safety Report 7164244-0 (Version None)
Quarter: 2010Q4

REPORT INFORMATION
  Report Type: 
  Country: None (occurrence: None)
  Receive Date: 20101215
  Receipt Date: 20101207
  Transmission Date: 20110411
  Serious: Yes (Hospitalization)
  Sender: FDA-Public Use
  Company Number: US-GILEAD-2010-0034232

PATIENT
  Sex: Female

DRUGS (2)
  1. LETAIRIS [Suspect]
     Indication: PULMONARY ARTERIAL HYPERTENSION
     Route: 048
     Dates: start: 20090624, end: 20101103
  2. LETAIRIS [Suspect]
     Route: 048
     Dates: start: 20101207

REACTIONS (3)
  - DEHYDRATION [None]
  - LIVER FUNCTION TEST ABNORMAL [None]
  - VOMITING [None]
